FAERS Safety Report 11695834 (Version 1)
Quarter: 2015Q4

REPORT INFORMATION
  Report Type: Spontaneous
  Country: US (occurrence: None)
  Receive Date: 20151103
  Receipt Date: 20151103
  Transmission Date: 20160304
  Serious: Yes (Disabling)
  Sender: FDA-Public Use
  Company Number: None

PATIENT
  Age: 84 Year
  Sex: Female
  Weight: 81.19 kg

DRUGS (5)
  1. THYROID HORMONE [Concomitant]
  2. VITAMIN D [Concomitant]
     Active Substance: CHOLECALCIFEROL
  3. ANTI ARRHYTHMIA [Concomitant]
  4. CLINDAMYCIN [Suspect]
     Active Substance: CLINDAMYCIN\CLINDAMYCIN PHOSPHATE
     Indication: CELLULITIS
     Dosage: 3 PILLS
     Route: 048
     Dates: start: 20150904, end: 20150908
  5. BLOOD PRESSURE [Concomitant]

REACTIONS (2)
  - Clostridium difficile infection [None]
  - Disease recurrence [None]

NARRATIVE: CASE EVENT DATE: 20150908
